FAERS Safety Report 8333409-4 (Version None)
Quarter: 2012Q2

REPORT INFORMATION
  Report Type: 
  Country: None (occurrence: None)
  Receive Date: 20120503
  Receipt Date: 20120502
  Transmission Date: 20120825
  Serious: Yes (Hospitalization)
  Sender: FDA-Public Use
  Company Number: NO-PFIZER INC-2012097869

PATIENT
  Age: 60 Year
  Sex: Male

DRUGS (6)
  1. APROVEL [Concomitant]
     Dosage: 75 MG
  2. SIMVASTATIN [Concomitant]
     Dosage: 20 MG
  3. LANSOPRAZOLE [Concomitant]
     Dosage: 50 MG
  4. ZOLOFT [Suspect]
     Indication: ANXIETY
  5. SUTENT [Concomitant]
     Dosage: 50 MG
  6. AMLODIPINE [Concomitant]
     Dosage: 10 MG

REACTIONS (2)
  - HYPOAESTHESIA [None]
  - APHASIA [None]
